FAERS Safety Report 9160639 (Version 1)
Quarter: 2013Q1

REPORT INFORMATION
  Report Type: Spontaneous
  Country: US (occurrence: US)
  Receive Date: 20130313
  Receipt Date: 20130313
  Transmission Date: 20140127
  Serious: No
  Sender: FDA-Public Use
  Company Number: US-ABBOTT-12P-163-0933576-00

PATIENT
  Sex: Male
  Weight: 91.25 kg

DRUGS (2)
  1. DEPAKOTE [Suspect]
     Indication: CONVULSION
     Dosage: 5000 MG DAILY
     Dates: end: 201203
  2. DEPAKOTE [Suspect]
     Dosage: 4000 MG DAILY
     Dates: start: 201203

REACTIONS (1)
  - Tremor [Unknown]
